FAERS Safety Report 9046370 (Version 1)
Quarter: 2013Q1

REPORT INFORMATION
  Report Type: Spontaneous
  Country: US (occurrence: None)
  Receive Date: 20130128
  Receipt Date: 20130128
  Transmission Date: 20140127
  Serious: Yes (Hospitalization)
  Sender: FDA-Public Use
  Company Number: None

PATIENT
  Age: 67 Year
  Sex: Male
  Weight: 57.2 kg

DRUGS (1)
  1. WARFARIN [Suspect]
     Indication: ATRIAL FLUTTER
     Route: 048
     Dates: start: 20121212, end: 20121226

REACTIONS (1)
  - International normalised ratio abnormal [None]
